FAERS Safety Report 6696613-7 (Version None)
Quarter: 2010Q2

REPORT INFORMATION
  Report Type: 
  Country: None (occurrence: None)
  Receive Date: 20100426
  Receipt Date: 20100421
  Transmission Date: 20101027
  Serious: Yes (Hospitalization)
  Sender: FDA-Public Use
  Company Number: A0856088A

PATIENT
  Age: 79 Year
  Sex: Female

DRUGS (5)
  1. ADVAIR DISKUS 100/50 [Suspect]
     Indication: CHRONIC OBSTRUCTIVE PULMONARY DISEASE
     Dosage: 2PUFF TWICE PER DAY
     Route: 055
     Dates: start: 20040101
  2. FLUTICASONE PROPIONATE [Concomitant]
  3. ALENDRONATE SODIUM [Concomitant]
  4. LEVAQUIN [Concomitant]
  5. PREDNISONE [Concomitant]

REACTIONS (6)
  - COUGH [None]
  - DYSPHONIA [None]
  - DYSPNOEA [None]
  - LUNG INFECTION [None]
  - LUNG NEOPLASM [None]
  - PNEUMONIA [None]
